FAERS Safety Report 9919440 (Version 2)
Quarter: 2014Q1

REPORT INFORMATION
  Report Type: Spontaneous
  Country: US (occurrence: US)
  Receive Date: 20140224
  Receipt Date: 20140313
  Transmission Date: 20141002
  Serious: Yes (Other)
  Sender: FDA-Public Use
  Company Number: US-BAYER-2014-027399

PATIENT
  Age: 29 Year
  Sex: Female

DRUGS (3)
  1. YAZ [Suspect]
     Dosage: UNK
     Dates: start: 200611, end: 200702
  2. YASMIN [Suspect]
  3. DIAZEPAM [Concomitant]
     Dosage: 5 MG,1-2 TABLETS EVERY 8 HOURS PRN
     Route: 048

REACTIONS (10)
  - Pulmonary embolism [None]
  - Chest pain [None]
  - Dyspnoea [None]
  - General physical health deterioration [None]
  - Injury [None]
  - Local swelling [None]
  - Emotional distress [None]
  - Pain [None]
  - Anhedonia [None]
  - Anxiety [None]
